FAERS Safety Report 8266478-0 (Version None)
Quarter: 2012Q2

REPORT INFORMATION
  Report Type: 
  Country: None (occurrence: None)
  Receive Date: 20120406
  Receipt Date: 20120328
  Transmission Date: 20120825
  Serious: Yes (Hospitalization)
  Sender: FDA-Public Use
  Company Number: FR-ASTRAZENECA-2012SE20561

PATIENT
  Age: 22 Year
  Sex: Male

DRUGS (4)
  1. QUETIAPINE FUMARATE [Suspect]
     Indication: SCHIZOPHRENIA
     Route: 048
     Dates: start: 20120309
  2. QUETIAPINE FUMARATE [Suspect]
     Route: 048
     Dates: start: 20120310
  3. ABILIFY [Concomitant]
     Indication: SCHIZOPHRENIA
  4. TRANSIPEG [Concomitant]
     Indication: CONSTIPATION

REACTIONS (3)
  - ABDOMINAL PAIN [None]
  - INTESTINAL OBSTRUCTION [None]
  - CONSTIPATION [None]
